FAERS Safety Report 10156577 (Version 1)
Quarter: 2014Q2

REPORT INFORMATION
  Report Type: Spontaneous
  Country: CA (occurrence: None)
  Receive Date: 20140505
  Receipt Date: 20140505
  Transmission Date: 20141212
  Serious: Yes (Other)
  Sender: FDA-Public Use
  Company Number: FK201401543

PATIENT
  Age: 36 Year
  Sex: Female

DRUGS (3)
  1. CEFAZOLIN [Suspect]
     Indication: PRODUCT USED FOR UNKNOWN INDICATION
     Dosage: 2GM 3 IN 1 D, INTRAVENOUS
     Route: 042
  2. CEFTRIAXONE (CEFTRIAXONE) [Concomitant]
  3. CEPHALEXIN (CEFALEXIN) (CEFALEXIN) [Concomitant]

REACTIONS (4)
  - Chest discomfort [None]
  - Dyspnoea [None]
  - Erythema [None]
  - Throat irritation [None]
